FAERS Safety Report 10249928 (Version 2)
Quarter: 2018Q4

REPORT INFORMATION
  Report Type: Spontaneous
  Country: US (occurrence: US)
  Receive Date: 20140620
  Receipt Date: 20181214
  Transmission Date: 20190204
  Serious: Yes (Other)
  Sender: FDA-Public Use
  Company Number: US-TEVA-489831USA

PATIENT
  Age: 23 Year
  Sex: Female
  Weight: 59.02 kg

DRUGS (1)
  1. PLAN B ONE-STEP [Suspect]
     Active Substance: LEVONORGESTREL
     Indication: POST COITAL CONTRACEPTION
     Dosage: 1.5 MILLIGRAM DAILY;
     Route: 048
     Dates: start: 20120522, end: 20120522

REACTIONS (4)
  - Abortion spontaneous [Recovered/Resolved]
  - Hot flush [Recovered/Resolved]
  - Maternal exposure before pregnancy [Unknown]
  - Dyspareunia [Recovered/Resolved]

NARRATIVE: CASE EVENT DATE: 201206
